FAERS Safety Report 4377734-0 (Version None)
Quarter: 2004Q2

REPORT INFORMATION
  Report Type: 
  Country: None (occurrence: None)
  Receive Date: 20040615
  Receipt Date: 20030826
  Transmission Date: 20050107
  Serious: Yes (Hospitalization)
  Sender: FDA-Public Use
  Company Number: PHHO2003IT10882

PATIENT
  Age: 68 Year
  Sex: Female
  Weight: 96 kg

DRUGS (6)
  1. VALSARTAN +/-HCTZ VS AMLODIPINE +/-HCTZ [Suspect]
     Indication: ESSENTIAL HYPERTENSION
     Dosage: LEVEL 1
     Route: 048
     Dates: start: 19981224
  2. VALSARTAN +/-HCTZ VS AMLODIPINE +/-HCTZ [Suspect]
     Dosage: LEVEL 5
     Route: 048
     Dates: end: 20030821
  3. ESIDRIX [Suspect]
     Indication: ESSENTIAL HYPERTENSION
     Dosage: 25 MG, LEVEL 5
     Route: 048
     Dates: end: 20030821
  4. VOLTAREN [Suspect]
     Dosage: 2 G, UNK
     Dates: start: 20030815, end: 20030821
  5. CO-EFFERALGAN [Suspect]
     Indication: OSTEOARTHRITIS
     Dosage: UNK, UNK
     Dates: start: 20030815, end: 20030821
  6. NEBILOX [Concomitant]
     Indication: ESSENTIAL HYPERTENSION
     Dosage: LEVEL 5 FREE ADD-ON
     Dates: end: 20030821

REACTIONS (1)
  - RENAL FAILURE [None]
